FAERS Safety Report 7232054-1 (Version None)
Quarter: 2011Q1

REPORT INFORMATION
  Report Type: 
  Country: None (occurrence: None)
  Receive Date: 20110118
  Receipt Date: 20110114
  Transmission Date: 20110831
  Serious: Yes (Other)
  Sender: FDA-Public Use
  Company Number: NL-BRISTOL-MYERS SQUIBB COMPANY-15482482

PATIENT
  Age: 16 Year
  Sex: Male

DRUGS (2)
  1. CYCLOPHOSPHAMIDE [Suspect]
     Indication: NEUROBLASTOMA
  2. DOXORUBICIN HCL [Suspect]
     Indication: NEUROBLASTOMA

REACTIONS (1)
  - CONGESTIVE CARDIOMYOPATHY [None]
